FAERS Safety Report 9521874 (Version 1)
Quarter: 2013Q1

REPORT INFORMATION
  Report Type: Spontaneous
  Country: US (occurrence: None)
  Receive Date: 20130305
  Receipt Date: 20130305
  Transmission Date: 20140127
  Serious: Yes (Other)
  Sender: FDA-Public Use
  Company Number: 163-21880-12072309

PATIENT
  Age: 84 Year
  Sex: Female
  Weight: 68.04 kg

DRUGS (13)
  1. REVLIMID [Suspect]
     Indication: MYELODYSPLASTIC SYNDROME
     Route: 048
     Dates: start: 20120613, end: 20120707
  2. SYNTHROID (LEVOTHYROXINE SODIUM0 [Concomitant]
  3. NITROSTAT (GLYCERYL TRINITRATE) [Concomitant]
  4. ISOSORBIDE DINITRATE (ISOSORBIDE DINITRATE) (ISOSORBIDE DINITRATE) [Concomitant]
  5. LOSARTAN POTASSIUM (LOSARTAN POTASSIUM0 [Concomitant]
  6. FENOFIBRATE (FENOFIBRATE) (FENOFIBRATE) [Concomitant]
  7. SOTALOL [Concomitant]
  8. HYDROCHLOROTHIAZIDE (HYDROCHLOROTHIAZIDE) [Concomitant]
  9. ASPIRIN (ACETYLSALICYLIC ACID) [Concomitant]
  10. CENTRUM SILVER (CENTRUM SILVER) [Concomitant]
  11. CITRACAL PLUS BONE DENSITY (CITRACAL BONE DENSITY BUILDER) [Concomitant]
  12. VITAMIN D (ERGOCALCIFEROL) [Concomitant]
  13. PROBIOTIC ACIDOPHILUS (LACTOBACILLUS ACIDOPHILUS) [Concomitant]

REACTIONS (3)
  - Dermatitis [None]
  - Skin ulcer [None]
  - Pruritus [None]
